FAERS Safety Report 8617659 (Version 7)
Quarter: 2014Q2

REPORT INFORMATION
  Report Type: Report from Study
  Country: IL (occurrence: IL)
  Receive Date: 20120615
  Receipt Date: 20140414
  Transmission Date: 20141212
  Serious: Yes (Hospitalization)
  Sender: FDA-Public Use
  Company Number: PHHO2012IL008920

PATIENT
  Age: 21 Year
  Sex: Female
  Weight: 55.6 kg

DRUGS (3)
  1. ACZ885 [Suspect]
     Indication: JUVENILE IDIOPATHIC ARTHRITIS
     Dosage: 2 MG/KG, EVERY FOUR WEEK
     Route: 058
     Dates: start: 20090922, end: 20120503
  2. ACZ885 [Suspect]
     Dosage: 2 MG/KG, EVERY FOUR WEEKS
     Dates: start: 20110531, end: 20130409
  3. BENZATHINE BENZYLPENICILLIN [Concomitant]
     Indication: PROPHYLAXIS
     Dosage: 1200000 IU, UNK
     Route: 065

REACTIONS (2)
  - Histiocytosis haematophagic [Recovered/Resolved]
  - Cytomegalovirus infection [Recovered/Resolved]
